FAERS Safety Report 6403752-4 (Version None)
Quarter: 2009Q4

REPORT INFORMATION
  Report Type: 
  Country: None (occurrence: None)
  Receive Date: 20091016
  Receipt Date: 20091016
  Transmission Date: 20100525
  Serious: Yes (Hospitalization, Other)
  Sender: FDA-Public Use
  Company Number: JP-B.I. PHARMACEUTICALS,INC./RIDGEFIELD-2009-BP-08313NB

PATIENT
  Age: 75 Year
  Sex: Male

DRUGS (6)
  1. MICARDIS [Suspect]
     Indication: HYPERTENSION
     Dosage: 20 MG
     Route: 048
     Dates: start: 20090616, end: 20090714
  2. CARDENALIN [Suspect]
     Indication: OEDEMA
     Dosage: 2 MG
     Route: 048
  3. CEZON [Suspect]
     Dosage: 3 DF
     Route: 048
  4. ARTIST [Concomitant]
     Dosage: 2.5 MG
     Route: 048
  5. ZYLORIC [Concomitant]
     Dosage: 0.5 MG
     Route: 048
  6. NORVASC [Concomitant]
     Indication: HYPERTENSION
     Dosage: 10 MG
     Route: 048

REACTIONS (1)
  - RENAL FAILURE CHRONIC [None]
